FAERS Safety Report 7938560-6 (Version None)
Quarter: 2011Q4

REPORT INFORMATION
  Report Type: 
  Country: None (occurrence: None)
  Receive Date: 20111123
  Receipt Date: 20111118
  Transmission Date: 20120403
  Serious: Yes (Death)
  Sender: FDA-Public Use
  Company Number: CA-ABBOTT-11P-028-0857318-01

PATIENT
  Sex: Male
  Weight: 81.72 kg

DRUGS (5)
  1. PERINDOPRIL ERBUMINE [Concomitant]
     Indication: HYPERTENSION
     Dates: start: 20010101
  2. CORTICOSTEROIDS [Concomitant]
     Indication: PSORIASIS
  3. CRESTOR [Concomitant]
     Indication: HYPERLIPIDAEMIA
     Dates: start: 19910101
  4. HUMIRA [Suspect]
     Indication: PSORIASIS
     Route: 058
     Dates: start: 20091212
  5. CALCIPOTRIENE [Concomitant]
     Indication: PSORIASIS

REACTIONS (1)
  - MYOCARDIAL INFARCTION [None]
